FAERS Safety Report 13114255 (Version 2)
Quarter: 2017Q1

REPORT INFORMATION
  Report Type: Spontaneous
  Country: US (occurrence: US)
  Receive Date: 20170113
  Receipt Date: 20170117
  Transmission Date: 20170428
  Serious: No
  Sender: FDA-Public Use
  Company Number: US-PFIZER INC-2017014191

PATIENT
  Sex: Female

DRUGS (2)
  1. DIAZEPAM. [Suspect]
     Active Substance: DIAZEPAM
     Indication: MUSCLE SPASMS
     Dosage: 5 MG, UNK (5MG 1 TABLET EVERY 6 HOURS)
  2. DIAZEPAM. [Suspect]
     Active Substance: DIAZEPAM
     Dosage: 2.5 MG, UNK (0.5 TABLET AT BEDTIME)

REACTIONS (2)
  - Somnolence [Unknown]
  - Intentional product misuse [Unknown]
